FAERS Safety Report 6296704-9 (Version None)
Quarter: 2009Q3

REPORT INFORMATION
  Report Type: 
  Country: None (occurrence: None)
  Receive Date: 20090804
  Receipt Date: 20090723
  Transmission Date: 20100115
  Serious: Yes (Other)
  Sender: FDA-Public Use
  Company Number: GB-ELI_LILLY_AND_COMPANY-GB200905000060

PATIENT
  Sex: Female
  Weight: 140 kg

DRUGS (7)
  1. BYETTA [Suspect]
     Indication: TYPE 2 DIABETES MELLITUS
     Dosage: 5 UG, UNKNOWN
     Route: 058
     Dates: start: 20090426
  2. IMPLANON [Concomitant]
     Indication: CONTRACEPTION
     Dosage: UNK, UNK
     Route: 050
     Dates: start: 20050902
  3. QVAR 40 [Concomitant]
     Indication: ASTHMA
     Dosage: 80 UG, 2/D
     Route: 055
  4. VENTOLIN [Concomitant]
     Dosage: UNK, EACH EVENING
     Route: 055
  5. METFORMIN [Concomitant]
     Indication: TYPE 2 DIABETES MELLITUS
     Dosage: 500 MG, 2/D
     Route: 048
  6. GLICLAZIDE [Concomitant]
     Dosage: 80 MG, DAILY (1/D)
  7. SIMVASTATIN [Concomitant]
     Dosage: 40 MG, DAILY (1/D)

REACTIONS (1)
  - MENORRHAGIA [None]
